FAERS Safety Report 20164700 (Version 1)
Quarter: 2021Q4

REPORT INFORMATION
  Report Type: Spontaneous
  Country: US (occurrence: US)
  Receive Date: 20211209
  Receipt Date: 20211209
  Transmission Date: 20220304
  Serious: Yes (Other)
  Sender: FDA-Public Use
  Company Number: US-PFIZER INC-202101654104

PATIENT
  Sex: Female

DRUGS (1)
  1. IBRANCE [Suspect]
     Active Substance: PALBOCICLIB
     Indication: Sepsis
     Dosage: 100 MG, CYCLIC

REACTIONS (4)
  - Pyrexia [Unknown]
  - Fatigue [Unknown]
  - Viral infection [Unknown]
  - Off label use [Unknown]
